FAERS Safety Report 7720025-8 (Version None)
Quarter: 2011Q3

REPORT INFORMATION
  Report Type: 
  Country: None (occurrence: None)
  Receive Date: 20110831
  Receipt Date: 20070720
  Transmission Date: 20111222
  Serious: No
  Sender: FDA-Public Use
  Company Number: 2007BI015813

PATIENT
  Sex: Female

DRUGS (2)
  1. TYSABRI [Suspect]
     Indication: MULTIPLE SCLEROSIS
     Route: 042
     Dates: start: 20050201, end: 20050201
  2. TYSABRI [Suspect]
     Route: 042
     Dates: start: 20070803

REACTIONS (10)
  - ALLERGY TO METALS [None]
  - MOBILITY DECREASED [None]
  - ASTHENIA [None]
  - MUSCULAR WEAKNESS [None]
  - MULTIPLE SCLEROSIS [None]
  - OPTIC NEURITIS [None]
  - ARTHRITIS [None]
  - GAIT DISTURBANCE [None]
  - BLINDNESS [None]
  - BONE PAIN [None]
